FAERS Safety Report 4867419-6 (Version None)
Quarter: 2005Q4

REPORT INFORMATION
  Report Type: 
  Country: None (occurrence: None)
  Receive Date: 20051222
  Receipt Date: 20051210
  Transmission Date: 20060501
  Serious: Yes (Other)
  Sender: FDA-Public Use
  Company Number: 2005138773

PATIENT
  Age: 69 Year
  Sex: Female

DRUGS (9)
  1. NEURONTIN [Suspect]
     Indication: POST HERPETIC NEURALGIA
     Dosage: 1600 MG (400 MG, 4 IN 1 D)
     Dates: start: 20040915
  2. DIOVAN [Concomitant]
  3. ATENOLOL [Concomitant]
  4. FLOVENT [Concomitant]
  5. AMBIEN [Concomitant]
  6. VITAMIN C (VITAMIN C) [Concomitant]
  7. CALCIUM (CALCIUM) [Concomitant]
  8. EVISTA [Concomitant]
  9. HYOSCYAMINE (HYOSCYAMINE) [Concomitant]

REACTIONS (4)
  - BLOOD TEST ABNORMAL [None]
  - MULTIPLE MYELOMA [None]
  - PROTEIN TOTAL INCREASED [None]
  - PROTEIN URINE PRESENT [None]
